FAERS Safety Report 5353602-2 (Version None)
Quarter: 2007Q2

REPORT INFORMATION
  Report Type: 
  Country: None (occurrence: None)
  Receive Date: 20070612
  Receipt Date: 20070517
  Transmission Date: 20071010
  Serious: Yes (Hospitalization, Other)
  Sender: FDA-Public Use
  Company Number: PHBS2007NL08191

PATIENT
  Age: 49 Year
  Sex: Female
  Weight: 85 kg

DRUGS (12)
  1. CLOZAPINE [Suspect]
     Indication: SCHIZOPHRENIA
     Dosage: 700 MG/D
     Route: 048
     Dates: start: 20050101
  2. CISORDINOL [Suspect]
     Indication: SCHIZOPHRENIA
     Dosage: 50 MG/D
     Route: 065
  3. PROMETHAZINE [Concomitant]
     Dosage: 25 MG, QD
  4. PANTOZOL [Concomitant]
     Dosage: 20 MG, QD
  5. AKINETON [Concomitant]
     Dosage: 8 MG, QID
  6. PARACETAMOLUM [Concomitant]
     Dosage: 1000 MG, PRN
  7. NITRAZEPAM [Concomitant]
     Dosage: 5 MG, PRN
  8. DORMICUM [Concomitant]
  9. OXAZEPAM [Concomitant]
     Dosage: 50 MG, QID
  10. MAGNESIUM HYDROXIDE TAB [Concomitant]
  11. IBUPROFEN [Concomitant]
     Dosage: 400 MG, TID
  12. MOVICOLON [Concomitant]
     Dosage: 1 DF, QD

REACTIONS (2)
  - BREAST CANCER [None]
  - SUICIDE ATTEMPT [None]
